FAERS Safety Report 17882429 (Version 1)
Quarter: 2020Q2

REPORT INFORMATION
  Report Type: Spontaneous
  Country: PL (occurrence: PL)
  Receive Date: 20200610
  Receipt Date: 20200610
  Transmission Date: 20200714
  Serious: Yes (Hospitalization, Other)
  Sender: FDA-Public Use
  Company Number: PL-PFIZER INC-2020222753

PATIENT
  Age: 66 Year
  Sex: Male

DRUGS (11)
  1. ENTRESTO [Suspect]
     Active Substance: SACUBITRIL\VALSARTAN
     Dosage: 1 DF (24/26 MG), BID
     Route: 065
  2. CLOPIDOGREL HYDROGEN SULPHATE [Suspect]
     Active Substance: CLOPIDOGREL BISULFATE
     Dosage: UNK UNK, 2X/DAY (75 OT, BID)
     Route: 065
  3. KALIPOZ [Concomitant]
     Active Substance: POTASSIUM CHLORIDE
     Dosage: 1 DF, 1X/DAY
     Route: 065
  4. SPIRONOL [Concomitant]
     Active Substance: SPIRONOLACTONE
     Dosage: 1 DF, 1X/DAY
     Route: 065
  5. ACETYLSALICYLIC ACID [Suspect]
     Active Substance: ASPIRIN
     Dosage: UNK, 2X/DAY (75 OT, BID)
     Route: 065
  6. ATORVASTATIN CALCIUM. [Suspect]
     Active Substance: ATORVASTATIN CALCIUM
     Dosage: UNK, 2X/DAY (40 OT, BID)
     Route: 065
  7. RIVAROXABAN [Suspect]
     Active Substance: RIVAROXABAN
     Dosage: UNK, 2X/DAY (15 OT, BID)
     Route: 065
  8. SPIRONOL [Concomitant]
     Active Substance: SPIRONOLACTONE
     Dosage: A TWO-DAY BREAK, THEN 25MG AT NOON
     Route: 065
  9. FUROSEMIDE. [Concomitant]
     Active Substance: FUROSEMIDE
     Dosage: 3 DF, TID (2 TABL IN THE MORNING 1 TABL AT NOON)
     Route: 065
  10. METOPROLOL SUCCINATE. [Suspect]
     Active Substance: METOPROLOL SUCCINATE
     Dosage: UNK, 2X/DAY (50 OT, BID)
     Route: 065
  11. FUROSEMIDE. [Concomitant]
     Active Substance: FUROSEMIDE
     Dosage: 3 DF, TID (2 TABL IN THE MORNING 1 TABL AT NOON)
     Route: 065

REACTIONS (3)
  - Blood pressure decreased [Recovered/Resolved]
  - Cardiac failure chronic [Recovering/Resolving]
  - Dizziness [Recovered/Resolved]
